FAERS Safety Report 14878442 (Version 1)
Quarter: 2018Q2

REPORT INFORMATION
  Report Type: Spontaneous
  Country: CH (occurrence: CH)
  Receive Date: 20180511
  Receipt Date: 20180511
  Transmission Date: 20180711
  Serious: Yes (Life-Threatening, Hospitalization)
  Sender: FDA-Public Use
  Company Number: CH-BAXTER-2018BAX013551

PATIENT
  Age: 64 Year
  Sex: Female

DRUGS (8)
  1. HOLOXAN 2 G [Suspect]
     Active Substance: IFOSFAMIDE
     Indication: SARCOMA
     Dosage: INTRAVENOUS INFUSION, FIRST CHEMOTHERAPY CYCLE WITH A CYCLE DURATION OF 21DAYS, DOSAGE FORM: UNSPECI
     Route: 042
     Dates: start: 20180403, end: 20180407
  2. PRIMPERAN [Suspect]
     Active Substance: METOCLOPRAMIDE HYDROCHLORIDE
     Indication: PROPHYLAXIS OF NAUSEA AND VOMITING
     Dosage: MAXIMALLY 4 TABLETS IN 24 HOURS ,TABLETS
     Route: 048
     Dates: start: 20180403
  3. ONDANSETRON [Suspect]
     Active Substance: ONDANSETRON
     Indication: PROPHYLAXIS OF NAUSEA AND VOMITING
     Dosage: MAXIMALLY 4 TABLETS IN 24 HOURS, TABLETS, TONGUE SOLUBLE
     Route: 048
     Dates: start: 20180403
  4. ADRIBLASTIN [Suspect]
     Active Substance: DOXORUBICIN HYDROCHLORIDE
     Indication: SARCOMA
     Dosage: DOSAGE FORM: UNSPECIFIED, INTRAVENOUS INFUSION, FIRST CHEMOTHERAPY CYCLE WITH A CYCLE DURATION OF 21
     Route: 042
     Dates: start: 20180403, end: 20180405
  5. VI-DE 3 [Suspect]
     Active Substance: CHOLECALCIFEROL
     Indication: PRODUCT USED FOR UNKNOWN INDICATION
     Dosage: LIQUIDS, DROPS
     Route: 048
     Dates: start: 20180324
  6. GLUCOSE 5% BAXTER [Suspect]
     Active Substance: DEXTROSE
     Indication: MEDICATION DILUTION
     Route: 042
     Dates: start: 20180403, end: 20180407
  7. NACL 0.9% VIAFLEX [Suspect]
     Active Substance: SODIUM CHLORIDE
     Indication: MEDICATION DILUTION
     Route: 042
     Dates: start: 20180403, end: 20180405
  8. CALCIMAGON D3 (COLECALCIFEROL/CALCIUM CARBONATE) [Suspect]
     Active Substance: CALCIUM CARBONATE\CHOLECALCIFEROL
     Indication: PRODUCT USED FOR UNKNOWN INDICATION
     Dosage: TABLETS, CHEWABLE
     Route: 048
     Dates: start: 20180324

REACTIONS (5)
  - Mucosal inflammation [Recovered/Resolved]
  - Febrile bone marrow aplasia [Recovered/Resolved]
  - General physical health deterioration [Recovering/Resolving]
  - Septic shock [Recovered/Resolved]
  - Neutropenia [Recovered/Resolved]

NARRATIVE: CASE EVENT DATE: 201804
